FAERS Safety Report 9797739 (Version 1)
Quarter: 2014Q1

REPORT INFORMATION
  Report Type: Spontaneous
  Country: US (occurrence: US)
  Receive Date: 20140106
  Receipt Date: 20140106
  Transmission Date: 20141002
  Serious: Yes (Hospitalization)
  Sender: FDA-Public Use
  Company Number: US-009507513-1312USA012260

PATIENT
  Sex: Male

DRUGS (3)
  1. ISENTRESS [Suspect]
     Indication: HIV INFECTION
     Dosage: 400 MG TWICE DAILY
     Route: 048
  2. RITONAVIR [Concomitant]
  3. LAMIVUDINE [Concomitant]

REACTIONS (5)
  - Adverse event [Not Recovered/Not Resolved]
  - Speech disorder [Not Recovered/Not Resolved]
  - Dysphagia [Not Recovered/Not Resolved]
  - Incorrect route of drug administration [Unknown]
  - Unresponsive to stimuli [Not Recovered/Not Resolved]
